FAERS Safety Report 5875465-9 (Version None)
Quarter: 2008Q3

REPORT INFORMATION
  Report Type: 
  Country: None (occurrence: None)
  Receive Date: 20080904
  Receipt Date: 20080822
  Transmission Date: 20090109
  Serious: Yes (Hospitalization, Other)
  Sender: FDA-Public Use
  Company Number: ETOC20080001

PATIENT
  Age: 56 Year
  Sex: Female
  Weight: 58.5 kg

DRUGS (1)
  1. ETODOLAC [Suspect]
     Indication: RHEUMATOID ARTHRITIS
     Dosage: 400 MG, DAILY, PER ORAL
     Route: 048

REACTIONS (10)
  - BLOOD ALBUMIN DECREASED [None]
  - BLOOD CHOLESTEROL INCREASED [None]
  - BLOOD UREA DECREASED [None]
  - CREATININE RENAL CLEARANCE INCREASED [None]
  - GLOMERULONEPHRITIS MEMBRANOUS [None]
  - HYPOALBUMINAEMIA [None]
  - PITTING OEDEMA [None]
  - PROTEINURIA [None]
  - RED BLOOD CELLS URINE [None]
  - RHEUMATOID ARTHRITIS [None]
